FAERS Safety Report 4755521-9 (Version None)
Quarter: 2005Q3

REPORT INFORMATION
  Report Type: 
  Country: None (occurrence: None)
  Receive Date: 20050830
  Receipt Date: 20050504
  Transmission Date: 20060218
  Serious: No
  Sender: FDA-Public Use
  Company Number: US-BRISTOL-MYERS SQUIBB COMPANY-12956660

PATIENT
  Sex: Male

DRUGS (1)
  1. ARIPIPRAZOLE [Suspect]
     Dosage: 10 MG TAB ONCE A NIGHT, THEN REDUCED TO 5 MG AT NIGHT

REACTIONS (2)
  - EYE PAIN [None]
  - INSOMNIA [None]
